FAERS Safety Report 9068363 (Version 1)
Quarter: 2013Q1

REPORT INFORMATION
  Report Type: Spontaneous
  Country: US (occurrence: None)
  Receive Date: 20130212
  Receipt Date: 20130212
  Transmission Date: 20140127
  Serious: Yes (Life-Threatening, Hospitalization)
  Sender: FDA-Public Use
  Company Number: None

PATIENT
  Age: 43 Year
  Sex: Female
  Weight: 113.4 kg

DRUGS (1)
  1. MIRENA BAYER [Suspect]
     Indication: MENORRHAGIA
     Dates: start: 20101122

REACTIONS (1)
  - Pulmonary embolism [None]
